FAERS Safety Report 9062149 (Version 1)
Quarter: 2013Q1

REPORT INFORMATION
  Report Type: Spontaneous
  Country: IT (occurrence: IT)
  Receive Date: 20130129
  Receipt Date: 20130129
  Transmission Date: 20140127
  Serious: Yes (Hospitalization)
  Sender: FDA-Public Use
  Company Number: IT-BAYER-2013-007891

PATIENT
  Age: 68 Year
  Sex: Male
  Weight: 115.19 kg

DRUGS (12)
  1. CARDIOASPIRIN [Suspect]
     Indication: PROPHYLAXIS
     Dosage: 100 MG, QD
     Route: 048
     Dates: start: 19960101, end: 20121230
  2. COUMADIN [Suspect]
     Indication: PROPHYLAXIS
     Dosage: 5 MG, PRN
     Route: 048
     Dates: start: 20120101, end: 20121230
  3. TORADOL [Suspect]
     Indication: RENAL COLIC
     Dosage: DAILY DOSE 10 MG
     Route: 048
     Dates: start: 20121224, end: 20121227
  4. BISOPROLOL [BISOPROLOL] [Concomitant]
     Dosage: DAILY DOSE 3.75 MG
     Route: 048
  5. RAMIPRIL ACTAVIS [Concomitant]
     Dosage: DAILY DOSE 2.5 MG
     Route: 048
  6. DOXAZOSIN ALMUS [Concomitant]
     Dosage: DAILY DOSE 4 MG
     Route: 048
  7. MICARDIS [Concomitant]
     Dosage: DAILY DOSE 80 MG
     Route: 048
  8. TORVAST [Concomitant]
     Dosage: DAILY DOSE 20 MG
     Route: 048
  9. EUTIROX [Concomitant]
     Dosage: DAILY DOSE 75 ?G
     Route: 048
  10. LASIX [Concomitant]
     Dosage: DAILY DOSE 12.25 MG
     Route: 048
  11. ALLOPURINOL [Concomitant]
     Dosage: DAILY DOSE 150 MG
     Route: 048
  12. LANTUS [Concomitant]
     Dosage: DAILY DOSE 10 IU
     Route: 058

REACTIONS (5)
  - International normalised ratio increased [Recovering/Resolving]
  - Gastrointestinal haemorrhage [Recovering/Resolving]
  - Gastric ulcer haemorrhage [Recovering/Resolving]
  - Renal haematoma [Recovering/Resolving]
  - Anaemia [Recovering/Resolving]
